FAERS Safety Report 5520072-0 (Version None)
Quarter: 2007Q4

REPORT INFORMATION
  Report Type: 
  Country: None (occurrence: None)
  Receive Date: 20071116
  Receipt Date: 20071106
  Transmission Date: 20080405
  Serious: Yes (Life-Threatening, Hospitalization)
  Sender: FDA-Public Use
  Company Number: CO-GENENTECH-250923

PATIENT
  Sex: Female
  Weight: 56 kg

DRUGS (7)
  1. MABTHERA [Suspect]
     Indication: RHEUMATOID ARTHRITIS
     Dosage: 1 G, UNK
     Route: 042
  2. METHOTREXATE [Concomitant]
     Indication: DRUG USE FOR UNKNOWN INDICATION
  3. PREDNISOLONE [Concomitant]
     Indication: DRUG USE FOR UNKNOWN INDICATION
  4. REMICADE [Concomitant]
     Indication: DRUG USE FOR UNKNOWN INDICATION
  5. ACETAMINOPHEN [Concomitant]
     Indication: PREMEDICATION
     Dosage: 1 GRAIN, UNK
  6. BENADRYL [Concomitant]
     Indication: PREMEDICATION
  7. CORTICOID [Concomitant]
     Indication: PREMEDICATION

REACTIONS (1)
  - PERITONITIS [None]
